FAERS Safety Report 6964102-8 (Version None)
Quarter: 2010Q3

REPORT INFORMATION
  Report Type: 
  Country: None (occurrence: None)
  Receive Date: 20100902
  Receipt Date: 20100823
  Transmission Date: 20110219
  Serious: Yes (Hospitalization)
  Sender: FDA-Public Use
  Company Number: DE-MYLANLABS-2010S1015272

PATIENT
  Age: 30 Year
  Sex: Female

DRUGS (6)
  1. DULOXETINE HYDROCHLORIDE [Suspect]
     Indication: SUICIDE ATTEMPT
     Route: 048
  2. DULOXETINE HYDROCHLORIDE [Suspect]
     Indication: OVERDOSE
     Route: 048
  3. AMITRIPTYLINE HYDROCHLORIDE [Suspect]
     Indication: SUICIDE ATTEMPT
     Route: 048
  4. AMITRIPTYLINE HYDROCHLORIDE [Suspect]
     Indication: OVERDOSE
     Route: 048
  5. PIPAMPERONE [Suspect]
     Indication: SUICIDE ATTEMPT
     Route: 048
  6. PIPAMPERONE [Suspect]
     Indication: OVERDOSE
     Route: 048

REACTIONS (6)
  - AGITATION [None]
  - DELIRIUM [None]
  - HALLUCINATION [None]
  - LOSS OF CONSCIOUSNESS [None]
  - OVERDOSE [None]
  - SUICIDE ATTEMPT [None]
